FAERS Safety Report 9415856 (Version 1)
Quarter: 2013Q3

REPORT INFORMATION
  Report Type: Spontaneous
  Country: US (occurrence: US)
  Receive Date: 20130724
  Receipt Date: 20130724
  Transmission Date: 20140515
  Serious: No
  Sender: FDA-Public Use
  Company Number: US-B.I. PHARMACEUTICALS,INC./RIDGEFIELD-2013-BI-21214BP

PATIENT
  Sex: Female

DRUGS (8)
  1. SPIRIVA [Suspect]
     Indication: CHRONIC OBSTRUCTIVE PULMONARY DISEASE
     Dosage: 18 MCG
     Route: 055
     Dates: start: 200906
  2. SYMBICORT [Concomitant]
     Route: 055
  3. PLAVIX [Concomitant]
     Indication: CLOT RETRACTION
  4. PRAVASTATIN [Concomitant]
  5. LYRICA [Concomitant]
     Indication: BACK PAIN
     Dosage: FORMULATION: CAPLET
  6. LISINOPRIL [Concomitant]
     Indication: HYPERTENSION
  7. LORAZEPAM [Concomitant]
  8. REMERON [Concomitant]

REACTIONS (3)
  - Dyspnoea [Recovered/Resolved]
  - Product quality issue [Unknown]
  - Product quality issue [Unknown]
